FAERS Safety Report 21441998 (Version 1)
Quarter: 2022Q4

REPORT INFORMATION
  Report Type: Spontaneous
  Country: US (occurrence: US)
  Receive Date: 20221011
  Receipt Date: 20221011
  Transmission Date: 20230112
  Serious: No
  Sender: FDA-Public Use
  Company Number: US-Sprout Pharmaceuticals, Inc.-2022SP000048

PATIENT
  Age: 72 Year
  Sex: Female

DRUGS (1)
  1. ADDYI [Suspect]
     Active Substance: FLIBANSERIN
     Indication: Disturbance in sexual arousal
     Route: 048
     Dates: start: 20220128, end: 20220205

REACTIONS (3)
  - Depression [Unknown]
  - Feeling abnormal [Unknown]
  - Drug ineffective [Unknown]
